FAERS Safety Report 4801611-1 (Version None)
Quarter: 2005Q4

REPORT INFORMATION
  Report Type: 
  Country: None (occurrence: None)
  Receive Date: 20051018
  Receipt Date: 20051003
  Transmission Date: 20060501
  Serious: Yes (Hospitalization)
  Sender: FDA-Public Use
  Company Number: 200513249FR

PATIENT
  Age: 69 Year
  Sex: Male

DRUGS (15)
  1. LASILIX [Suspect]
     Route: 048
     Dates: start: 20050820, end: 20050819
  2. OFLOCET [Suspect]
     Indication: HYDRONEPHROSIS
     Route: 042
     Dates: start: 20050819, end: 20050819
  3. OFLOCET [Suspect]
     Indication: PYELONEPHRITIS ACUTE
     Route: 042
     Dates: start: 20050819, end: 20050819
  4. PREVISCAN [Suspect]
     Route: 048
     Dates: end: 20050818
  5. GENTAMICIN SULFATE [Suspect]
     Indication: HYDRONEPHROSIS
     Dates: start: 20050819, end: 20050819
  6. GENTAMICIN SULFATE [Suspect]
     Indication: PYELONEPHRITIS ACUTE
     Dates: start: 20050819, end: 20050819
  7. ROCEPHIN [Suspect]
     Indication: HYDRONEPHROSIS
     Dates: start: 20050819, end: 20050819
  8. ROCEPHIN [Suspect]
     Indication: PYELONEPHRITIS ACUTE
     Dates: start: 20050819, end: 20050819
  9. PERFALGAN [Suspect]
     Route: 042
     Dates: start: 20050819, end: 20050819
  10. CORTANCYL [Concomitant]
     Route: 048
  11. CORDARONE [Concomitant]
     Route: 048
  12. SANDIMMUNE [Concomitant]
  13. LOXEN [Concomitant]
     Route: 048
  14. ENALAPRIL MALEATE [Concomitant]
     Route: 048
  15. ALLOPURINOL [Concomitant]
     Route: 048

REACTIONS (3)
  - DRUG INTERACTION [None]
  - INTERNATIONAL NORMALISED RATIO INCREASED [None]
  - PROTHROMBIN LEVEL DECREASED [None]
